FAERS Safety Report 20249037 (Version 5)
Quarter: 2022Q2

REPORT INFORMATION
  Report Type: Report from Study
  Country: DE (occurrence: DE)
  Receive Date: 20211229
  Receipt Date: 20220602
  Transmission Date: 20220721
  Serious: Yes (Hospitalization, Other)
  Sender: FDA-Public Use
  Company Number: DE-JNJFOC-20211245438

PATIENT
  Age: 73 Year
  Sex: Female
  Weight: 62 kg

DRUGS (24)
  1. AMIVANTAMAB [Suspect]
     Active Substance: AMIVANTAMAB
     Indication: Non-small cell lung cancer
     Dosage: LATEST DOSE 25-JAN-2022
     Route: 065
     Dates: end: 20220208
  2. AMIVANTAMAB [Suspect]
     Active Substance: AMIVANTAMAB
     Route: 065
     Dates: end: 20220520
  3. HYALURONATE SODIUM [Concomitant]
     Active Substance: HYALURONATE SODIUM
     Indication: Prophylaxis
     Dosage: 1 DROP
     Route: 047
     Dates: start: 20211106
  4. UMECLIDINIUM [Concomitant]
     Active Substance: UMECLIDINIUM
     Indication: Product used for unknown indication
  5. VILANTEROL [Concomitant]
     Active Substance: VILANTEROL
     Indication: Product used for unknown indication
  6. METHYLPREDNISOLONE ACEPONATE [Concomitant]
     Active Substance: METHYLPREDNISOLONE ACEPONATE
     Indication: Rash pustular
     Route: 061
     Dates: start: 20210830, end: 20210906
  7. METHYLPREDNISOLONE ACEPONATE [Concomitant]
     Active Substance: METHYLPREDNISOLONE ACEPONATE
     Route: 061
     Dates: start: 20210907, end: 20211017
  8. MAGNESIUM [Concomitant]
     Active Substance: MAGNESIUM
     Indication: Prophylaxis
     Route: 048
     Dates: start: 20210816
  9. HOMEOPATHICS [Concomitant]
     Active Substance: HOMEOPATHICS
     Indication: Sleep disorder
     Route: 048
     Dates: start: 20211130
  10. LOPERAMIDE [Concomitant]
     Active Substance: LOPERAMIDE
     Indication: Diarrhoea
     Route: 048
     Dates: start: 20211004, end: 20211024
  11. OPTIDERM [POLIDOCANOL;UREA] [Concomitant]
     Indication: Rash pustular
     Route: 061
     Dates: start: 20211011
  12. METROGEL [Concomitant]
     Active Substance: METRONIDAZOLE
     Indication: Rash
     Route: 061
     Dates: start: 20211213
  13. METROGEL [Concomitant]
     Active Substance: METRONIDAZOLE
     Route: 061
     Dates: start: 20211018, end: 20211116
  14. SAB SIMPLEX [SIMETICONE] [Concomitant]
     Indication: Flatulence
     Route: 048
     Dates: start: 20211220
  15. XGEVA [Concomitant]
     Active Substance: DENOSUMAB
     Indication: Prophylaxis
     Route: 058
     Dates: start: 20210914
  16. VALACYCLOVIR HYDROCHLORIDE [Concomitant]
     Active Substance: VALACYCLOVIR HYDROCHLORIDE
     Indication: Herpes ophthalmic
     Route: 048
     Dates: start: 20220112, end: 20220119
  17. PERFLUOROHEXYLOCTANE [Concomitant]
     Active Substance: PERFLUOROHEXYLOCTANE
     Indication: Prophylaxis
     Dosage: 1 DROP
     Route: 047
     Dates: start: 20211202
  18. UREA [Concomitant]
     Active Substance: UREA
     Dosage: GM
     Route: 061
     Dates: start: 20210914
  19. DEXA EDO [Concomitant]
     Active Substance: DEXAMETHASONE SODIUM PHOSPHATE
     Route: 047
     Dates: start: 20220212
  20. BEPANTHEN [PANTHENOL] [Concomitant]
     Dosage: GM
     Route: 061
     Dates: start: 20210922, end: 20210922
  21. BEPANTHEN [PANTHENOL] [Concomitant]
     Dosage: APPLICATION
     Route: 048
     Dates: start: 20211011
  22. SAGE [Concomitant]
     Active Substance: SAGE
     Dosage: APPLICATION
     Route: 048
     Dates: start: 20211011
  23. TREHALOSE [Concomitant]
     Active Substance: TREHALOSE
     Dosage: APPLICATION
     Route: 047
     Dates: start: 20211029
  24. PFIZER-BIONTECH COVID-19 VACCINE [Concomitant]
     Active Substance: TOZINAMERAN
     Indication: Prophylaxis
     Route: 030
     Dates: start: 20220308, end: 20220308

REACTIONS (1)
  - Corneal erosion [Unknown]

NARRATIVE: CASE EVENT DATE: 20211216
